FAERS Safety Report 9983649 (Version 2)
Quarter: 2014Q1

REPORT INFORMATION
  Report Type: Spontaneous
  Country: JP (occurrence: JP)
  Receive Date: 20140307
  Receipt Date: 20140321
  Transmission Date: 20141002
  Serious: No
  Sender: FDA-Public Use
  Company Number: JP-BAYER-2014-030740

PATIENT
  Age: 88 Year
  Sex: Male

DRUGS (3)
  1. AVELOX [Suspect]
     Indication: NASOPHARYNGITIS
     Dosage: 400 MG, QD
     Route: 048
     Dates: start: 20140219, end: 20140223
  2. PURSENNID [Concomitant]
     Dosage: UNK
     Route: 048
  3. MAGMITT [Concomitant]
     Dosage: 250 MG, TID
     Route: 048
     Dates: start: 20111125

REACTIONS (1)
  - Restlessness [Recovered/Resolved]
